FAERS Safety Report 8937167 (Version 1)
Quarter: 2012Q4

REPORT INFORMATION
  Report Type: Spontaneous
  Country: FR (occurrence: None)
  Receive Date: 20121121
  Receipt Date: 20121121
  Transmission Date: 20130627
  Serious: Yes (Hospitalization, Other)
  Sender: FDA-Public Use
  Company Number: 2012000248

PATIENT
  Age: 65 Year
  Sex: Female

DRUGS (7)
  1. ACEON (PERINDOPRIL ERBUMINE) TABLET [Suspect]
     Indication: DRUG USE FOR UNKNOWN INDICATION
     Route: 048
     Dates: end: 20120406
  2. TAHOR [Suspect]
     Route: 048
     Dates: start: 20120206, end: 20120322
  3. TAHOR [Suspect]
     Dates: start: 20120405, end: 20120406
  4. ACEBUTOLOL (ACEBUTOLOL) [Concomitant]
  5. KARDEGIC (ACETYLSALICYIATE LYSINE [Concomitant]
  6. ESOMEPRAZOLE (ESOMEPRAZOLE) [Concomitant]
  7. CORTANCYL (PREDNISONE) [Concomitant]

REACTIONS (6)
  - Hypersensitivity [None]
  - Chest pain [None]
  - Malaise [None]
  - Loss of consciousness [None]
  - Hypotension [None]
  - Tongue oedema [None]
